FAERS Safety Report 7030459-5 (Version None)
Quarter: 2010Q4

REPORT INFORMATION
  Report Type: 
  Country: None (occurrence: None)
  Receive Date: 20101001
  Receipt Date: 20100923
  Transmission Date: 20110411
  Serious: Yes (Life-Threatening, Hospitalization, Other)
  Sender: FDA-Public Use
  Company Number: 2010SP026025

PATIENT
  Age: 29 Year
  Sex: Female
  Weight: 81.6475 kg

DRUGS (2)
  1. NUVARING [Suspect]
     Indication: CONTRACEPTION
     Dosage: VAG
     Route: 067
     Dates: start: 20040101, end: 20080101
  2. BLOOD THINNERS [Suspect]
     Indication: PULMONARY EMBOLISM

REACTIONS (4)
  - ABORTION SPONTANEOUS [None]
  - DEPRESSION [None]
  - DRUG EXPOSURE DURING PREGNANCY [None]
  - PULMONARY EMBOLISM [None]
